FAERS Safety Report 10348256 (Version 1)
Quarter: 2014Q3

REPORT INFORMATION
  Report Type: Spontaneous
  Country: US (occurrence: US)
  Receive Date: 20140729
  Receipt Date: 20140729
  Transmission Date: 20150326
  Serious: No
  Sender: FDA-Public Use
  Company Number: US-BAYER-2014-112113

PATIENT
  Age: 26 Year
  Sex: Female

DRUGS (1)
  1. SKYLA [Suspect]
     Active Substance: LEVONORGESTREL
     Indication: CONTRACEPTION
     Dosage: 14 MCG/24HR, CONT
     Route: 015
     Dates: start: 201407

REACTIONS (7)
  - Abdominal distension [None]
  - Abdominal pain upper [None]
  - Menstruation delayed [None]
  - Insomnia [None]
  - Vaginal haemorrhage [None]
  - Procedural pain [None]
  - Crying [None]

NARRATIVE: CASE EVENT DATE: 201407
